FAERS Safety Report 9052717 (Version 1)
Quarter: 2013Q1

REPORT INFORMATION
  Report Type: Spontaneous
  Country: US (occurrence: US)
  Receive Date: 20130207
  Receipt Date: 20130207
  Transmission Date: 20140127
  Serious: Yes (Other)
  Sender: FDA-Public Use
  Company Number: US-AMGEN-USASP2013006621

PATIENT
  Age: 59 Year
  Sex: Male

DRUGS (2)
  1. ETANERCEPT [Suspect]
     Indication: PSORIATIC ARTHROPATHY
     Dosage: 50 MG, QWK
     Route: 058
  2. ETANERCEPT [Suspect]
     Indication: PSORIASIS

REACTIONS (8)
  - Lung disorder [Unknown]
  - Alveolitis [Unknown]
  - Dyspnoea [Unknown]
  - Fatigue [Unknown]
  - Pyrexia [Unknown]
  - Night sweats [Unknown]
  - Lymphadenopathy mediastinal [Unknown]
  - Spirometry abnormal [Recovering/Resolving]
